FAERS Safety Report 16544478 (Version 1)
Quarter: 2019Q3

REPORT INFORMATION
  Report Type: Spontaneous
  Country: US (occurrence: US)
  Receive Date: 20190528
  Receipt Date: 20190528
  Transmission Date: 20191004
  Serious: No
  Sender: FDA-Public Use
  Company Number: None

PATIENT
  Age: 69 Year
  Sex: Male

DRUGS (1)
  1. HUMIRA [Suspect]
     Active Substance: ADALIMUMAB
     Indication: PSORIATIC ARTHROPATHY
     Dosage: ?          OTHER DOSE:80MG/0.8ML;?
     Route: 058
     Dates: start: 20190525, end: 20190525

REACTIONS (2)
  - Therapy cessation [None]
  - Device issue [None]

NARRATIVE: CASE EVENT DATE: 20190525
